FAERS Safety Report 7878942-4 (Version None)
Quarter: 2011Q4

REPORT INFORMATION
  Report Type: 
  Country: None (occurrence: None)
  Receive Date: 20111021
  Receipt Date: 20110809
  Transmission Date: 20120403
  Serious: Yes (Other)
  Sender: FDA-Public Use
  Company Number: ALL1-2011-02673

PATIENT

DRUGS (1)
  1. VYVANSE [Suspect]
     Indication: PRODUCT USED FOR UNKNOWN INDICATION
     Dosage: 70 MG, 2X/DAY:BID, ORAL
     Route: 048
     Dates: end: 20110101

REACTIONS (2)
  - OVERDOSE [None]
  - PSYCHOTIC DISORDER [None]
